FAERS Safety Report 10371484 (Version 1)
Quarter: 2014Q1

REPORT INFORMATION
  Report Type: Spontaneous
  Country: US (occurrence: None)
  Receive Date: 20140306
  Receipt Date: 20140306
  Transmission Date: 20141002
  Serious: Yes (Hospitalization)
  Sender: FDA-Public Use
  Company Number: 163-21880-13010457

PATIENT
  Age: 69 Year
  Sex: Female

DRUGS (7)
  1. REVLIMID (LENALIDOMIDE) (25 MILLIGRAM, CAPSULES) [Suspect]
     Indication: PLASMA CELL MYELOMA
     Dosage: 20-AUG-2012 - TEMPORARILY INTERRUPTED
     Route: 048
     Dates: start: 20120820
  2. CALCIUM (CALCIUM) (UNKNOWN) [Concomitant]
  3. DEXAMETHASONE (DEXAMETHASONE) (UNKNOWN) [Concomitant]
  4. HYDROCHLOROTHIAZIDE (HYDROCHLOROTHIAZIDE) (UNKNOWN) [Concomitant]
  5. NORVASC (AMLODIPINE BESILATE) (UNKNOWN) [Concomitant]
  6. POTASSIUM (POTASSIUM) (UNKNOWN) [Concomitant]
  7. VELCADE (BORTEZOMIB) (UNKNOWN) [Concomitant]

REACTIONS (1)
  - Pneumonia [None]
